FAERS Safety Report 15713990 (Version 1)
Quarter: 2018Q4

REPORT INFORMATION
  Report Type: Spontaneous
  Country: US (occurrence: US)
  Receive Date: 20181212
  Receipt Date: 20181212
  Transmission Date: 20190205
  Serious: No
  Sender: FDA-Public Use
  Company Number: US-ENDO PHARMACEUTICALS INC-2018-041178

PATIENT
  Sex: Female

DRUGS (1)
  1. TESTIM [Suspect]
     Active Substance: TESTOSTERONE
     Indication: PRODUCT USED FOR UNKNOWN INDICATION
     Dosage: UNK UNKNOWN, UNKNOWN
     Route: 065

REACTIONS (12)
  - Anger [Unknown]
  - Vomiting [Unknown]
  - Headache [Unknown]
  - Aggression [Unknown]
  - Nausea [Unknown]
  - Product odour abnormal [Unknown]
  - Product contamination [Unknown]
  - Quality of life decreased [Unknown]
  - Accidental exposure to product [Unknown]
  - Skin burning sensation [Unknown]
  - Personality change [Unknown]
  - Hormone level abnormal [Unknown]
